FAERS Safety Report 9442606 (Version 2)
Quarter: 2013Q4

REPORT INFORMATION
  Report Type: Spontaneous
  Country: US (occurrence: US)
  Receive Date: 20130806
  Receipt Date: 20131025
  Transmission Date: 20140711
  Serious: Yes (Other)
  Sender: FDA-Public Use
  Company Number: US-BAYER-2013-093194

PATIENT
  Age: 22 Year
  Sex: Female
  Weight: 74.83 kg

DRUGS (1)
  1. MIRENA [Suspect]
     Indication: CONTRACEPTION
     Dosage: 20 MCG/24HR, CONT
     Route: 015
     Dates: start: 20111110

REACTIONS (9)
  - Embedded device [None]
  - Procedural pain [None]
  - Injury [None]
  - Emotional distress [None]
  - General physical health deterioration [None]
  - Pain [None]
  - Depression [None]
  - Stress [None]
  - Medical device discomfort [None]
